FAERS Safety Report 6522311-6 (Version None)
Quarter: 2009Q4

REPORT INFORMATION
  Report Type: 
  Country: None (occurrence: None)
  Receive Date: 20091230
  Receipt Date: 20091222
  Transmission Date: 20100525
  Serious: Yes (Hospitalization, Other)
  Sender: FDA-Public Use
  Company Number: B0604498A

PATIENT
  Sex: Male

DRUGS (8)
  1. PAXIL [Suspect]
     Indication: DEPRESSION
     Dosage: 40MG PER DAY
     Route: 048
  2. DEPAKENE [Suspect]
     Indication: DRUG USE FOR UNKNOWN INDICATION
     Dosage: 200MG TWICE PER DAY
     Route: 048
  3. LIMAS [Suspect]
     Indication: DEPRESSION
     Dosage: 200MG PER DAY
     Route: 048
  4. SEROQUEL [Suspect]
     Indication: DRUG USE FOR UNKNOWN INDICATION
     Dosage: 100MG PER DAY
     Route: 048
  5. BENZALIN [Suspect]
     Indication: INSOMNIA
     Dosage: 10MG PER DAY
     Route: 048
  6. BLOPRESS [Suspect]
     Indication: HYPERTENSION
     Dosage: 8MG PER DAY
     Route: 048
  7. FUROSEMIDE [Suspect]
     Indication: HYPERTENSION
     Dosage: 20MG PER DAY
     Route: 048
  8. MEILAX [Suspect]
     Indication: DEPRESSIVE SYMPTOM
     Dosage: 1MG PER DAY
     Route: 048

REACTIONS (7)
  - ALTERED STATE OF CONSCIOUSNESS [None]
  - BLOOD PRESSURE DECREASED [None]
  - DRUG TOXICITY [None]
  - GAIT DISTURBANCE [None]
  - MULTIPLE DRUG OVERDOSE INTENTIONAL [None]
  - SUICIDE ATTEMPT [None]
  - VOMITING [None]
